FAERS Safety Report 7294434-8 (Version None)
Quarter: 2011Q1

REPORT INFORMATION
  Report Type: 
  Country: None (occurrence: None)
  Receive Date: 20110215
  Receipt Date: 20110207
  Transmission Date: 20110831
  Serious: Yes (Other)
  Sender: FDA-Public Use
  Company Number: US-ELI_LILLY_AND_COMPANY-US201012006347

PATIENT
  Sex: Female
  Weight: 80.726 kg

DRUGS (15)
  1. BYETTA [Suspect]
     Dosage: 10 UG, 2/D
     Route: 058
     Dates: end: 20090701
  2. GLUCOPHAGE [Concomitant]
     Indication: TYPE 2 DIABETES MELLITUS
     Dosage: 1000 MG, 2/D
     Route: 048
  3. PRANDIN [Concomitant]
     Indication: TYPE 2 DIABETES MELLITUS
     Dosage: 1 MG, 2/D
     Route: 048
  4. ALLOPURINOL [Concomitant]
     Indication: NEPHROLITHIASIS
     Dosage: 300 MG, DAILY (1/D)
     Route: 048
  5. ATIVAN [Concomitant]
  6. PRANDIN [Concomitant]
     Dosage: 0.5 MG, 3/D
     Route: 048
  7. SYNTHROID [Concomitant]
  8. BYETTA [Suspect]
     Dosage: 5 UG, 2/D
     Route: 058
     Dates: start: 20090701, end: 20090801
  9. TRAMADOL [Concomitant]
     Dosage: 50 MG, UNK
  10. TUMS ULTRA [Concomitant]
     Dosage: 2000 MG, DAILY (1/D)
  11. BYETTA [Suspect]
     Indication: TYPE 2 DIABETES MELLITUS
     Dosage: 5 UG, 2/D
     Route: 058
     Dates: start: 20050101
  12. VYTORIN [Concomitant]
  13. HYZAAR [Concomitant]
     Dosage: UNK, 2/D
  14. BYETTA [Suspect]
     Dosage: 10 UG, 2/D
     Route: 058
     Dates: start: 20090801
  15. ACTOS [Concomitant]
     Indication: DIABETES MELLITUS
     Dosage: 30 MG, UNK
     Route: 048

REACTIONS (11)
  - INSOMNIA [None]
  - FEELING ABNORMAL [None]
  - GLYCOSYLATED HAEMOGLOBIN INCREASED [None]
  - DIABETIC NEUROPATHY [None]
  - FATIGUE [None]
  - BLOOD GLUCOSE INCREASED [None]
  - THYROID CANCER [None]
  - SOMNOLENCE [None]
  - BLOOD GLUCOSE DECREASED [None]
  - INCORRECT DOSE ADMINISTERED [None]
  - MUSCLE SPASMS [None]
